FAERS Safety Report 8362607-9 (Version None)
Quarter: 2012Q2

REPORT INFORMATION
  Report Type: 
  Country: None (occurrence: None)
  Receive Date: 20120516
  Receipt Date: 20120510
  Transmission Date: 20120825
  Serious: No
  Sender: FDA-Public Use
  Company Number: US-PFIZER INC-2012114983

PATIENT
  Sex: Female
  Weight: 56.236 kg

DRUGS (3)
  1. PRISTIQ [Suspect]
     Indication: DEPRESSION
     Dosage: 100 MG, DAILY
     Dates: end: 20120501
  2. PRISTIQ [Suspect]
     Indication: ANXIETY
  3. LORAZEPAM [Concomitant]
     Indication: ANXIETY
     Dosage: 1 MG, AS NEEDED

REACTIONS (4)
  - CHILLS [None]
  - DIZZINESS [None]
  - MALAISE [None]
  - HEADACHE [None]
